FAERS Safety Report 8301237-1 (Version None)
Quarter: 2012Q2

REPORT INFORMATION
  Report Type: 
  Country: None (occurrence: None)
  Receive Date: 20120420
  Receipt Date: 20120411
  Transmission Date: 20120825
  Serious: Yes (Other)
  Sender: FDA-Public Use
  Company Number: JP-VERTEX PHARMACEUTICALS INC.-AE-2012-005292

PATIENT
  Age: 64 Year
  Sex: Male

DRUGS (7)
  1. TELAVIC (TELAPREVIR) [Suspect]
     Indication: HEPATITIS C
     Route: 048
     Dates: start: 20120224
  2. PEG-INTRON [Concomitant]
     Route: 051
     Dates: start: 20120309
  3. SM OINTMENT [Concomitant]
     Route: 061
     Dates: start: 20120227
  4. MUCOSTA [Concomitant]
     Route: 048
     Dates: start: 20120309, end: 20120322
  5. FAMOTIDINE [Concomitant]
     Route: 048
     Dates: start: 20120323
  6. RIBAVIRIN [Concomitant]
     Indication: HEPATITIS C
     Route: 048
     Dates: start: 20120224
  7. PEG-INTRON [Concomitant]
     Indication: HEPATITIS C
     Route: 051
     Dates: start: 20120224, end: 20120302

REACTIONS (1)
  - PANCYTOPENIA [None]
